FAERS Safety Report 9159991 (Version 1)
Quarter: 2013Q1

REPORT INFORMATION
  Report Type: Spontaneous
  Country: US (occurrence: US)
  Receive Date: 20130313
  Receipt Date: 20130313
  Transmission Date: 20140127
  Serious: No
  Sender: FDA-Public Use
  Company Number: US-BAYER-2013-031042

PATIENT
  Age: 30 Year
  Sex: Female
  Weight: 99.77 kg

DRUGS (9)
  1. BETASERON [Suspect]
     Dosage: INJECT 0.25MG (1 ML), QOD
     Route: 058
  2. REQUIP [Concomitant]
  3. ATENOLOL [Concomitant]
  4. VENTOLIN HFA [Concomitant]
  5. LEVOTHYROXIN [Concomitant]
  6. VITAMIN D2 [Concomitant]
  7. SEASONIQUE [Concomitant]
  8. FLOVENT [Concomitant]
  9. HCTZ/ TRIAMT CAP 25-50 MG [Concomitant]

REACTIONS (1)
  - Asthma [Unknown]
